FAERS Safety Report 25565933 (Version 2)
Quarter: 2025Q3

REPORT INFORMATION
  Report Type: Spontaneous
  Country: US (occurrence: US)
  Receive Date: 20250716
  Receipt Date: 20250804
  Transmission Date: 20251020
  Serious: No
  Sender: PFIZER
  Company Number: US-PFIZER INC-202500143797

PATIENT
  Age: 76 Year
  Sex: Female

DRUGS (4)
  1. IBRANCE [Suspect]
     Active Substance: PALBOCICLIB
     Indication: Breast cancer female
     Route: 048
     Dates: start: 20250707
  2. IBRANCE [Suspect]
     Active Substance: PALBOCICLIB
     Route: 048
  3. ITOVEBI [Suspect]
     Active Substance: INAVOLISIB
     Dates: start: 20250707
  4. FASLODEX [Concomitant]
     Active Substance: FULVESTRANT

REACTIONS (8)
  - Decreased appetite [Not Recovered/Not Resolved]
  - Nausea [Not Recovered/Not Resolved]
  - Mouth ulceration [Recovering/Resolving]
  - Infection [Recovering/Resolving]
  - Facial paresis [Recovering/Resolving]
  - Oral infection [Recovering/Resolving]
  - Tongue biting [Recovering/Resolving]
  - Mouth injury [Recovering/Resolving]

NARRATIVE: CASE EVENT DATE: 20250101
